FAERS Safety Report 9353849 (Version 1)
Quarter: 2013Q2

REPORT INFORMATION
  Report Type: Spontaneous
  Country: FR (occurrence: FR)
  Receive Date: 20130618
  Receipt Date: 20130618
  Transmission Date: 20140414
  Serious: Yes (Life-Threatening, Hospitalization)
  Sender: FDA-Public Use
  Company Number: FR-BAXTER-2013BAX021790

PATIENT
  Age: 37 Year
  Sex: Female

DRUGS (14)
  1. HOLOXAN [Suspect]
     Indication: OSTEOSARCOMA
     Route: 042
     Dates: start: 20121129, end: 20130522
  2. UROMITEXAN 5 G/50 ML, SOLUTION INJECTABLE POUR PERFUSION EN FLACON [Suspect]
     Indication: PROPHYLAXIS
     Route: 065
  3. SODIUM BICARBONATE [Suspect]
     Indication: PRODUCT USED FOR UNKNOWN INDICATION
     Route: 002
  4. FILGRASTIM [Suspect]
     Indication: PRODUCT USED FOR UNKNOWN INDICATION
     Dosage: 48 MU ONE INJECTION
     Dates: start: 20130523
  5. DOXORUBICIN [Suspect]
     Indication: OSTEOSARCOMA
     Route: 042
     Dates: start: 20121129, end: 20130521
  6. DOXORUBICIN [Suspect]
     Dates: start: 20130521
  7. CISPLATINE [Suspect]
     Indication: OSTEOSARCOMA
     Route: 042
     Dates: start: 20121129, end: 20130521
  8. CISPLATINE [Suspect]
     Dates: start: 20130521
  9. METHYLPREDNISOLONE [Suspect]
     Indication: PREMEDICATION
     Route: 065
  10. ONDANSETRON [Suspect]
     Indication: PRODUCT USED FOR UNKNOWN INDICATION
     Dosage: 1 TABLET IN MORNING AND EVENING
     Route: 065
     Dates: end: 20130524
  11. PRAZEPAM [Suspect]
     Indication: PREMEDICATION
     Route: 048
  12. PREDNISOLONE [Suspect]
     Indication: PRODUCT USED FOR UNKNOWN INDICATION
     Route: 048
     Dates: end: 20130525
  13. METOCLOPRAMIDE [Concomitant]
     Indication: NAUSEA
     Route: 065
  14. ARANESP [Concomitant]
     Indication: PRODUCT USED FOR UNKNOWN INDICATION
     Dosage: 150
     Route: 065

REACTIONS (8)
  - Neutropenia [Unknown]
  - Leukopenia [Unknown]
  - Pyrexia [Unknown]
  - Anaemia [Unknown]
  - Thrombocytopenia [Unknown]
  - Diarrhoea [Unknown]
  - Hypokalaemia [Unknown]
  - Electrocardiogram ST segment depression [Unknown]
